FAERS Safety Report 8473940-4 (Version None)
Quarter: 2012Q2

REPORT INFORMATION
  Report Type: 
  Country: None (occurrence: None)
  Receive Date: 20120628
  Receipt Date: 20120217
  Transmission Date: 20120825
  Serious: Yes (Other)
  Sender: FDA-Public Use
  Company Number: US-MYLANLABS-2012S1003427

PATIENT
  Age: 54 Year
  Sex: Female

DRUGS (9)
  1. SCOPOLAMINE [Concomitant]
     Indication: SALIVARY GLAND DISORDER
     Route: 062
  2. IBUPROFEN [Concomitant]
  3. CLOZAPINE [Suspect]
     Indication: SCHIZOPHRENIA
     Route: 048
     Dates: start: 20111110, end: 20120209
  4. FLUPHENAZINE DECANOATE [Concomitant]
     Indication: SCHIZOPHRENIA
  5. SYNTHROID [Concomitant]
  6. LITHIUM CARBONATE [Concomitant]
     Indication: BIPOLAR DISORDER
  7. ATIVAN [Concomitant]
     Indication: ANXIETY
  8. MAGNESIUM OXIDE [Concomitant]
     Indication: HYPOVITAMINOSIS
  9. ZOFRAN [Concomitant]

REACTIONS (2)
  - GRANULOCYTOPENIA [None]
  - LEUKOPENIA [None]
